FAERS Safety Report 21004927 (Version 1)
Quarter: 2022Q3

REPORT INFORMATION
  Report Type: Report from Study
  Country: MX (occurrence: MX)
  Receive Date: 20220624
  Receipt Date: 20220624
  Transmission Date: 20221027
  Serious: Yes (Other)
  Sender: FDA-Public Use
  Company Number: MX-NOVARTISPH-NVSC2022MX144585

PATIENT
  Sex: Female
  Weight: 52 kg

DRUGS (5)
  1. DIOVAN [Suspect]
     Active Substance: VALSARTAN
     Indication: Hypertension
     Dosage: 0.5 DOSAGE FORM, BID (80 MG, HALF IN THE MORNING AND HALF IN THE NIGHT), STARTED 20 YEARS AGO
     Route: 048
  2. DIOVAN [Suspect]
     Active Substance: VALSARTAN
     Dosage: 2 DOSAGE FORM, QD (DAILY DEPENDING ON THE NEED)
     Route: 048
  3. NIFEDIPINE [Concomitant]
     Active Substance: NIFEDIPINE
     Indication: Hypertension
     Dosage: 10 ML (CAPSULE THAT IS PUNCTURED, 2 TO 3 DROPS ARE PLACED, START DATE 20 YEARS AGO APPROXIMATELY)
     Route: 060
  4. CHLORTHALIDONE [Concomitant]
     Active Substance: CHLORTHALIDONE
     Indication: Diuretic therapy
     Dosage: 1 DOSAGE FORM, QD (50 MG, START DATE 20 YEARS AGO APPROXIMATELY)
     Route: 048
  5. CHLORTHALIDONE [Concomitant]
     Active Substance: CHLORTHALIDONE
     Dosage: 1 DOSAGE FORM (50MG, ONCE WHEN THE PRESSURE INCREASES)
     Route: 048

REACTIONS (5)
  - Cataract [Not Recovered/Not Resolved]
  - Erythema [Unknown]
  - Blood pressure increased [Not Recovered/Not Resolved]
  - Headache [Unknown]
  - Wrong technique in product usage process [Unknown]

NARRATIVE: CASE EVENT DATE: 20220101
